FAERS Safety Report 5067485-1 (Version None)
Quarter: 2006Q3

REPORT INFORMATION
  Report Type: 
  Country: None (occurrence: None)
  Receive Date: 20060713
  Receipt Date: 20060619
  Transmission Date: 20061208
  Serious: Yes (Hospitalization, Other)
  Sender: FDA-Public Use
  Company Number: 239571

PATIENT
  Age: 57 Year
  Sex: Female
  Weight: 63.9 kg

DRUGS (25)
  1. ACTIVELLA [Suspect]
     Indication: MENOPAUSAL SYMPTOMS
     Dosage: ORAL
     Route: 048
     Dates: start: 20020718, end: 20030801
  2. PREMARIN [Suspect]
     Indication: MENOPAUSAL SYMPTOMS
     Dosage: 1.25 MG; SEE IMAGE
     Dates: start: 19941101, end: 19950601
  3. PREMARIN [Suspect]
     Indication: MENOPAUSAL SYMPTOMS
     Dosage: 1.25 MG; SEE IMAGE
     Dates: start: 19951101, end: 19971201
  4. PREMPRO [Suspect]
     Indication: POSTMENOPAUSAL HAEMORRHAGE
     Dosage: 2.5 MG
     Dates: start: 19981101, end: 20010101
  5. PROVERA [Suspect]
     Indication: VAGINAL HAEMORRHAGE
     Dosage: 5 MG
     Dates: start: 19951101, end: 19971101
  6. PREFEST [Suspect]
     Indication: MENOPAUSAL SYMPTOMS
     Dates: start: 20010301, end: 20020401
  7. AMEN [Concomitant]
  8. LO/OVRAL (LEVONORGESTREL, ETHINYLESTRADIOL) [Concomitant]
  9. MEDROXYPROGESTERONE ACETATE [Concomitant]
  10. BLOCADREN [Concomitant]
  11. PROPACET 100 [Concomitant]
  12. ATENOLOL [Concomitant]
  13. LORAZEPAM [Concomitant]
  14. TENUATE [Concomitant]
  15. AMBIEN [Concomitant]
  16. DAYPRO [Concomitant]
  17. TENORMIN [Concomitant]
  18. ZITHROMAX [Concomitant]
  19. ATIVAN [Concomitant]
  20. VIOXX [Concomitant]
  21. CELEBREX [Concomitant]
  22. ZYRTEC [Concomitant]
  23. TENORETIC 100 [Concomitant]
  24. BEXTRA (PARACOXIB SODIUM) [Concomitant]
  25. NAPROSYN [Concomitant]

REACTIONS (1)
  - BREAST CANCER [None]
